FAERS Safety Report 25227052 (Version 1)
Quarter: 2025Q2

REPORT INFORMATION
  Report Type: Spontaneous
  Country: GB (occurrence: GB)
  Receive Date: 20250422
  Receipt Date: 20250422
  Transmission Date: 20250717
  Serious: Yes (Other)
  Sender: ANI
  Company Number: GB-ANIPHARMA-2025-UK-000071

PATIENT
  Sex: Male

DRUGS (6)
  1. CANDESARTAN CILEXETIL [Suspect]
     Active Substance: CANDESARTAN CILEXETIL
     Indication: Product used for unknown indication
  2. ASTRAZENECA COVID-19 VACCINE [Suspect]
     Active Substance: AZD-1222
  3. CITALOPRAM [Suspect]
     Active Substance: CITALOPRAM
  4. ACETAMINOPHEN [Suspect]
     Active Substance: ACETAMINOPHEN
  5. LEVOTHYROXINE SODIUM [Suspect]
     Active Substance: LEVOTHYROXINE SODIUM
  6. VITAMIN D [Suspect]
     Active Substance: VITAMIN D NOS

REACTIONS (1)
  - Thrombosis with thrombocytopenia syndrome [Unknown]
